FAERS Safety Report 22600831 (Version 1)
Quarter: 2023Q2

REPORT INFORMATION
  Report Type: Spontaneous
  Country: US (occurrence: None)
  Receive Date: 20230613
  Receipt Date: 20230613
  Transmission Date: 20230721
  Serious: No
  Sender: FDA-Public Use
  Company Number: None

PATIENT
  Sex: Female

DRUGS (2)
  1. OPSUMIT [Suspect]
     Active Substance: MACITENTAN
     Indication: Pulmonary arterial hypertension
     Dosage: 10MG  DAILY ORAL?
     Route: 048
     Dates: start: 20221126
  2. VELETRI [Suspect]
     Active Substance: EPOPROSTENOL

REACTIONS (3)
  - Weight decreased [None]
  - Diarrhoea [None]
  - Decreased appetite [None]
